FAERS Safety Report 24194330 (Version 1)
Quarter: 2024Q3

REPORT INFORMATION
  Report Type: Spontaneous
  Country: HU (occurrence: HU)
  Receive Date: 20240809
  Receipt Date: 20240809
  Transmission Date: 20241016
  Serious: Yes (Other)
  Sender: MYLAN
  Company Number: HU-BAYER-2024A100325

PATIENT

DRUGS (2)
  1. LEVOFLOXACIN [Suspect]
     Active Substance: LEVOFLOXACIN
     Indication: Product used for unknown indication
     Dosage: UNK
     Route: 065
  2. CIPROFLOXACIN [Suspect]
     Active Substance: CIPROFLOXACIN
     Indication: Product used for unknown indication
     Dosage: UNK
     Route: 065

REACTIONS (30)
  - Angina pectoris [Recovered/Resolved]
  - Brain injury [Unknown]
  - Exophthalmos [Recovered/Resolved]
  - Suicidal ideation [Unknown]
  - Breast pain [Unknown]
  - Eye pain [Unknown]
  - Dysstasia [Unknown]
  - Nervous system disorder [Unknown]
  - Skin exfoliation [Unknown]
  - Spinal pain [Unknown]
  - Hyperacusis [Unknown]
  - Burning sensation [Unknown]
  - Illness [Unknown]
  - Weight decreased [Unknown]
  - Neck pain [Unknown]
  - Genital burning sensation [Unknown]
  - Hypoaesthesia [Not Recovered/Not Resolved]
  - Fear [Recovered/Resolved]
  - Disturbance in attention [Unknown]
  - Gastrointestinal disorder [Unknown]
  - Sleep disorder [Recovered/Resolved]
  - Dyspepsia [Unknown]
  - Pruritus [Recovered/Resolved]
  - Tinnitus [Unknown]
  - Arthralgia [Unknown]
  - Fatigue [Unknown]
  - Headache [Unknown]
  - Palpitations [Unknown]
  - Back pain [Unknown]
  - Myalgia [Unknown]
